FAERS Safety Report 4608630-9 (Version None)
Quarter: 2005Q1

REPORT INFORMATION
  Report Type: 
  Country: None (occurrence: None)
  Receive Date: 20050311
  Receipt Date: 20050311
  Transmission Date: 20050727
  Serious: Yes (Hospitalization)
  Sender: FDA-Public Use
  Company Number: None

PATIENT
  Age: 55 Year
  Sex: Male
  Weight: 72.1219 kg

DRUGS (4)
  1. GATIFLOXACIN [Suspect]
     Indication: FEBRILE NEUTROPENIA
     Dosage: 400 MG DAILY ORAL
     Route: 048
     Dates: start: 20050306, end: 20050309
  2. CEFEPIME [Suspect]
     Indication: FEBRILE NEUTROPENIA
     Dosage: 2 GM  Q12HOURS  INTRAVENOUS
     Route: 042
     Dates: start: 20050305, end: 20050310
  3. SULFAMETHOXAZOLE + TRIMETHOPRIM [Concomitant]
  4. VORICONAZOLE [Concomitant]

REACTIONS (1)
  - DIARRHOEA [None]
